FAERS Safety Report 8416725-7 (Version None)
Quarter: 2012Q2

REPORT INFORMATION
  Report Type: 
  Country: None (occurrence: None)
  Receive Date: 20120606
  Receipt Date: 20120530
  Transmission Date: 20120825
  Serious: Yes (Death)
  Sender: FDA-Public Use
  Company Number: JP-VERTEX PHARMACEUTICALS INC.-AE-2012-007915

PATIENT
  Age: 75 Year
  Sex: Female

DRUGS (8)
  1. PEG-INTRON [Concomitant]
     Route: 051
     Dates: start: 20120220, end: 20120312
  2. TELAVIC (TELAPREVIR) [Suspect]
     Indication: HEPATITIS C
     Route: 048
     Dates: start: 20120220, end: 20120227
  3. JUVELA [Concomitant]
     Route: 048
     Dates: start: 20120220
  4. MIKA [Concomitant]
     Route: 048
     Dates: start: 20120220
  5. URSO 250 [Concomitant]
     Route: 048
     Dates: start: 20120221
  6. GLAKAY [Concomitant]
     Route: 048
     Dates: start: 20120220
  7. REBETOL [Concomitant]
     Route: 048
     Dates: start: 20120220
  8. ADALAT [Concomitant]
     Route: 048
     Dates: start: 20120220

REACTIONS (1)
  - CARDIAC FAILURE [None]
